FAERS Safety Report 9472685 (Version 1)
Quarter: 2013Q3

REPORT INFORMATION
  Report Type: Spontaneous
  Country: BR (occurrence: BR)
  Receive Date: 20130823
  Receipt Date: 20130823
  Transmission Date: 20140515
  Serious: Yes (Other)
  Sender: FDA-Public Use
  Company Number: BR-AMGEN-BRASP2013059457

PATIENT
  Age: 32 Year
  Sex: Female
  Weight: 59 kg

DRUGS (3)
  1. ENBREL [Suspect]
     Indication: ANKYLOSING SPONDYLITIS
     Dosage: 50 MG, WEEKLY
     Route: 065
     Dates: start: 201307
  2. METHOTREXATE [Concomitant]
     Dosage: 0.6 ML PER WEEK
  3. ALENTHUS [Concomitant]
     Dosage: 75 MG, 1X/DAY

REACTIONS (3)
  - Immunosuppression [Unknown]
  - Influenza [Unknown]
  - Oral herpes [Unknown]
